FAERS Safety Report 7034338-9 (Version None)
Quarter: 2010Q4

REPORT INFORMATION
  Report Type: 
  Country: None (occurrence: None)
  Receive Date: 20101008
  Receipt Date: 20100924
  Transmission Date: 20110411
  Serious: Yes (Life-Threatening, Hospitalization)
  Sender: FDA-Public Use
  Company Number: PHHY2010FR65785

PATIENT
  Age: 32 Year
  Sex: Female
  Weight: 68 kg

DRUGS (1)
  1. PARLODEL [Suspect]
     Indication: LACTATION INHIBITION THERAPY
     Dosage: 2.5 MG
     Route: 048
     Dates: start: 20090306, end: 20090313

REACTIONS (8)
  - BLINDNESS UNILATERAL [None]
  - CEREBRAL ARTERY STENOSIS [None]
  - CEREBRAL DISORDER [None]
  - CEREBROVASCULAR ACCIDENT [None]
  - HEADACHE [None]
  - HYPERTENSION [None]
  - LEUKOENCEPHALOPATHY [None]
  - TINNITUS [None]
